FAERS Safety Report 25118104 (Version 2)
Quarter: 2025Q1

REPORT INFORMATION
  Report Type: Spontaneous
  Country: US (occurrence: US)
  Receive Date: 20250325
  Receipt Date: 20250328
  Transmission Date: 20250409
  Serious: Yes (Other)
  Sender: CSL BEHRING
  Company Number: US-BEH-2025199777

PATIENT
  Age: 62 Year
  Sex: Female

DRUGS (27)
  1. HIZENTRA [Suspect]
     Active Substance: HUMAN IMMUNOGLOBULIN G
     Indication: Immunodeficiency
     Dosage: 9 G (45ML) QW
     Route: 058
     Dates: start: 20240921
  2. HIZENTRA [Suspect]
     Active Substance: HUMAN IMMUNOGLOBULIN G
     Dosage: 9 G (45ML) QW
     Route: 058
     Dates: start: 20240921
  3. HIZENTRA [Suspect]
     Active Substance: HUMAN IMMUNOGLOBULIN G
     Dosage: 9 G (45ML) QW
     Route: 058
     Dates: start: 20240921
  4. ALBUTEROL [Concomitant]
     Active Substance: ALBUTEROL
  5. ALLEGRA [Concomitant]
     Active Substance: FEXOFENADINE HYDROCHLORIDE
  6. AMITRIPTYLINE [Concomitant]
     Active Substance: AMITRIPTYLINE
  7. BUDESONIDE [Concomitant]
     Active Substance: BUDESONIDE
  8. BUMETANIDE [Concomitant]
     Active Substance: BUMETANIDE
  9. CALCIUM [Concomitant]
     Active Substance: CALCIUM
  10. DEXAMETHASONE [Concomitant]
     Active Substance: DEXAMETHASONE
  11. ELIQUIS [Concomitant]
     Active Substance: APIXABAN
  12. FERAHEME [Concomitant]
     Active Substance: FERUMOXYTOL NON-STOICHIOMETRIC MAGNETITE
  13. FLONASE ALLERGY RELIEF [Concomitant]
     Active Substance: FLUTICASONE PROPIONATE
  14. FOLIC ACID\POTASSIUM IODIDE [Concomitant]
     Active Substance: FOLIC ACID\POTASSIUM IODIDE
  15. ATORVASTATIN CALCIUM [Concomitant]
     Active Substance: ATORVASTATIN CALCIUM
  16. LYRICA [Concomitant]
     Active Substance: PREGABALIN
  17. METOPROLOL [Concomitant]
     Active Substance: METOPROLOL
  18. MIDODRINE [Concomitant]
     Active Substance: MIDODRINE
  19. MIRALAX [Concomitant]
     Active Substance: POLYETHYLENE GLYCOL 3350
  20. POTASSIUM CITRATE [Concomitant]
     Active Substance: POTASSIUM CITRATE
  21. PROTONIX [Concomitant]
     Active Substance: PANTOPRAZOLE SODIUM
  22. SINGULAIR [Concomitant]
     Active Substance: MONTELUKAST SODIUM
  23. TEZSPIRE [Concomitant]
     Active Substance: TEZEPELUMAB-EKKO
  24. TOPROL XL [Concomitant]
     Active Substance: METOPROLOL SUCCINATE
  25. VALTREX [Concomitant]
     Active Substance: VALACYCLOVIR HYDROCHLORIDE
  26. VITAMIN D [Concomitant]
     Active Substance: VITAMIN D NOS
  27. XOPENEX HFA [Concomitant]
     Active Substance: LEVALBUTEROL TARTRATE

REACTIONS (4)
  - Immunodeficiency [Unknown]
  - Pneumonitis [Not Recovered/Not Resolved]
  - COVID-19 [Not Recovered/Not Resolved]
  - Upper respiratory tract infection [Not Recovered/Not Resolved]

NARRATIVE: CASE EVENT DATE: 20250223
